FAERS Safety Report 9142752 (Version 1)
Quarter: 2013Q1

REPORT INFORMATION
  Report Type: Spontaneous
  Country: US (occurrence: US)
  Receive Date: 20130306
  Receipt Date: 20130306
  Transmission Date: 20140127
  Serious: No
  Sender: FDA-Public Use
  Company Number: US-ENDO PHARMACEUTICALS INC.-OPER20120192

PATIENT
  Sex: Male

DRUGS (2)
  1. OPANA ER [Suspect]
     Indication: PAIN
     Route: 048
     Dates: start: 201111, end: 20120206
  2. OPANA [Suspect]
     Indication: PAIN
     Route: 048
     Dates: start: 201111, end: 20120206

REACTIONS (1)
  - No adverse event [Unknown]
